FAERS Safety Report 8428037-6 (Version None)
Quarter: 2012Q2

REPORT INFORMATION
  Report Type: 
  Country: None (occurrence: None)
  Receive Date: 20120611
  Receipt Date: 20120524
  Transmission Date: 20120825
  Serious: Yes (Disabling, Other)
  Sender: FDA-Public Use
  Company Number: CA-JNJFOC-20120407443

PATIENT
  Sex: Female
  Weight: 70 kg

DRUGS (8)
  1. HYDROCHLOROTHIAZIDE [Concomitant]
  2. XARELTO [Suspect]
     Indication: THROMBOSIS PROPHYLAXIS
     Route: 048
     Dates: start: 20111214, end: 20111218
  3. EFFEXOR XR [Concomitant]
  4. LIPITOR [Concomitant]
  5. PREMARIN [Concomitant]
  6. XARELTO [Suspect]
     Indication: KNEE ARTHROPLASTY
     Route: 048
     Dates: start: 20111214, end: 20111218
  7. ZOPICLONE [Concomitant]
  8. ASPIRIN [Concomitant]

REACTIONS (1)
  - DEEP VEIN THROMBOSIS [None]
